FAERS Safety Report 8339755-2 (Version None)
Quarter: 2012Q2

REPORT INFORMATION
  Report Type: 
  Country: None (occurrence: None)
  Receive Date: 20120507
  Receipt Date: 20120503
  Transmission Date: 20120825
  Serious: No
  Sender: FDA-Public Use
  Company Number: US-BAYER-2012-043504

PATIENT
  Age: 40 Year
  Sex: Female
  Weight: 84 kg

DRUGS (5)
  1. ACETAMINOPHEN [Concomitant]
  2. IRON PREPARATIONS [Concomitant]
  3. BETASERON [Suspect]
     Indication: MULTIPLE SCLEROSIS
     Dosage: 1 ML, QOD
  4. LOSARTAN POTASSIUM [Concomitant]
  5. MULTI-VITAMIN [Concomitant]

REACTIONS (7)
  - CHILLS [None]
  - INJECTION SITE PRURITUS [None]
  - PRURITUS GENERALISED [None]
  - INJECTION SITE ERYTHEMA [None]
  - MYALGIA [None]
  - PYREXIA [None]
  - INJECTION SITE SWELLING [None]
